FAERS Safety Report 5217918-2 (Version None)
Quarter: 2007Q1

REPORT INFORMATION
  Report Type: 
  Country: None (occurrence: None)
  Receive Date: 20070124
  Receipt Date: 20070112
  Transmission Date: 20070707
  Serious: Yes (Other)
  Sender: FDA-Public Use
  Company Number: PHBS2006BE18588

PATIENT
  Age: 38 Year
  Sex: Female

DRUGS (1)
  1. CAFERGOT [Suspect]
     Indication: MIGRAINE
     Dosage: 6 MG - 8 MG, QW
     Route: 054

REACTIONS (8)
  - AORTIC VALVE DISEASE [None]
  - BICUSPID AORTIC VALVE [None]
  - BLOOD CHOLESTEROL INCREASED [None]
  - CEREBROVASCULAR DISORDER [None]
  - ERGOT POISONING [None]
  - HEMIPARESIS [None]
  - PROTEIN TOTAL INCREASED [None]
  - PULSE ABSENT [None]
